FAERS Safety Report 6573795-9 (Version None)
Quarter: 2010Q1

REPORT INFORMATION
  Report Type: 
  Country: None (occurrence: None)
  Receive Date: 20100208
  Receipt Date: 20100203
  Transmission Date: 20100710
  Serious: Yes (Hospitalization)
  Sender: FDA-Public Use
  Company Number: JP-SANOFI-AVENTIS-2010SA002917

PATIENT
  Age: 77 Year
  Sex: Male
  Weight: 48 kg

DRUGS (7)
  1. PLAVIX [Suspect]
     Indication: CEREBRAL INFARCTION
     Route: 048
     Dates: start: 20090605, end: 20091218
  2. LINTON [Concomitant]
  3. ALL OTHER NON-THERAPEUTIC PRODUCTS [Concomitant]
  4. ALL OTHER THERAPEUTIC PRODUCTS [Concomitant]
  5. HARNAL [Concomitant]
  6. TAKEPRON [Concomitant]
  7. SENNOSIDE A [Concomitant]

REACTIONS (1)
  - HYPOALBUMINAEMIA [None]
